FAERS Safety Report 7346776-5 (Version None)
Quarter: 2011Q1

REPORT INFORMATION
  Report Type: 
  Country: None (occurrence: None)
  Receive Date: 20110311
  Receipt Date: 20110228
  Transmission Date: 20110831
  Serious: Yes (Disabling)
  Sender: FDA-Public Use
  Company Number: JP-JNJFOC-20110302084

PATIENT
  Sex: Female
  Weight: 46 kg

DRUGS (8)
  1. DOXIL [Suspect]
     Route: 042
  2. GRANISETRON HCL [Concomitant]
     Indication: PROPHYLAXIS
     Route: 042
  3. DOXIL [Suspect]
     Indication: OVARIAN CANCER RECURRENT
     Route: 042
  4. DOXIL [Suspect]
     Route: 042
  5. DOXIL [Suspect]
     Route: 042
  6. AZUNOL [Concomitant]
     Indication: PROPHYLAXIS
     Route: 049
  7. UREA [Concomitant]
     Indication: PROPHYLAXIS
     Route: 061
  8. DEXART [Concomitant]
     Indication: PROPHYLAXIS
     Route: 042

REACTIONS (1)
  - CEREBRAL HAEMORRHAGE [None]
